FAERS Safety Report 17349402 (Version 1)
Quarter: 2020Q3

REPORT INFORMATION
  Report Type: Spontaneous
  Country: BR (occurrence: BR)
  Receive Date: 20200130
  Receipt Date: 20200130
  Transmission Date: 20201104
  Serious: Yes (Other)
  Sender: FDA-Public Use
  Company Number: BR-ROCHE-2536627

PATIENT
  Sex: Male

DRUGS (2)
  1. EMICIZUMAB. [Suspect]
     Active Substance: EMICIZUMAB
     Route: 065
  2. EMICIZUMAB. [Suspect]
     Active Substance: EMICIZUMAB
     Indication: FACTOR VIII DEFICIENCY
     Dosage: IN THE FIRST 4 WEEKS
     Route: 065

REACTIONS (4)
  - Road traffic accident [Unknown]
  - Abdominal injury [Unknown]
  - Arthralgia [Unknown]
  - Loss of consciousness [Unknown]
